FAERS Safety Report 4530846-0 (Version None)
Quarter: 2004Q4

REPORT INFORMATION
  Report Type: 
  Country: None (occurrence: None)
  Receive Date: 20041215
  Receipt Date: 20041206
  Transmission Date: 20050328
  Serious: Yes (Hospitalization)
  Sender: FDA-Public Use
  Company Number: 2004PK02075

PATIENT
  Age: 68 Year
  Sex: Female
  Weight: 72 kg

DRUGS (1)
  1. NESACAINE [Suspect]
     Indication: ANAESTHESIA
     Dosage: 40 ML DAILY IV
     Route: 042
     Dates: start: 20041123, end: 20041123

REACTIONS (5)
  - ANAESTHETIC COMPLICATION [None]
  - COMPARTMENT SYNDROME [None]
  - INJECTION SITE BURNING [None]
  - MEDICATION ERROR [None]
  - PHLEBOTHROMBOSIS [None]
